FAERS Safety Report 15907907 (Version 2)
Quarter: 2019Q1

REPORT INFORMATION
  Report Type: Spontaneous
  Country: FR (occurrence: FR)
  Receive Date: 20190204
  Receipt Date: 20190204
  Transmission Date: 20190417
  Serious: Yes (Other)
  Sender: FDA-Public Use
  Company Number: PHHY2018FR169482

PATIENT
  Age: 50 Year
  Sex: Male
  Weight: 70 kg

DRUGS (5)
  1. NEORAL [Suspect]
     Active Substance: CYCLOSPORINE
     Indication: PROPHYLAXIS
     Dosage: 250 MG, BID
     Route: 048
     Dates: start: 201802
  2. VALACICLOVIR HYDROCHLORIDE [Suspect]
     Active Substance: VALACYCLOVIR HYDROCHLORIDE
     Indication: INFECTION PROPHYLAXIS
     Dosage: 1000 MG, BID
     Route: 048
     Dates: start: 201802
  3. WELLVONE [Suspect]
     Active Substance: ATOVAQUONE
     Indication: INFECTION PROPHYLAXIS
     Dosage: UNK
     Route: 048
  4. LETERMOVIR [Suspect]
     Active Substance: LETERMOVIR
     Indication: ANTIVIRAL PROPHYLAXIS
     Dosage: 240 MG, QD
     Route: 048
     Dates: start: 20180601, end: 20180830
  5. ORACILLINE (PENICILLIN V) [Suspect]
     Active Substance: PENICILLIN V
     Indication: INFECTION PROPHYLAXIS
     Dosage: 3 DF, QD
     Route: 048
     Dates: start: 201802, end: 20180810

REACTIONS (2)
  - Cytopenia [Recovering/Resolving]
  - Haematotoxicity [Recovering/Resolving]

NARRATIVE: CASE EVENT DATE: 20180814
